FAERS Safety Report 9919238 (Version 1)
Quarter: 2014Q1

REPORT INFORMATION
  Report Type: Spontaneous
  Country: IN (occurrence: IN)
  Receive Date: 20140224
  Receipt Date: 20140224
  Transmission Date: 20141002
  Serious: Yes (Hospitalization)
  Sender: FDA-Public Use
  Company Number: IN-DRREDDYS-USA/IND/14/0038342

PATIENT
  Age: 28 Year
  Sex: Female

DRUGS (1)
  1. AMLODIPINE [Suspect]
     Indication: PRODUCT USED FOR UNKNOWN INDICATION
     Route: 065

REACTIONS (8)
  - Shock [Unknown]
  - Abdominal pain [Unknown]
  - Vomiting [Unknown]
  - Renal failure acute [Unknown]
  - Hyperglycaemia [Unknown]
  - Respiratory failure [Unknown]
  - Pleural effusion [Unknown]
  - Intentional overdose [Unknown]
